FAERS Safety Report 6416709-4 (Version None)
Quarter: 2009Q4

REPORT INFORMATION
  Report Type: 
  Country: None (occurrence: None)
  Receive Date: 20091022
  Receipt Date: 20091012
  Transmission Date: 20100525
  Serious: Yes (Death)
  Sender: FDA-Public Use
  Company Number: ADE09054-L

PATIENT

DRUGS (4)
  1. CYCLOSPORINE [Suspect]
     Indication: PROPHYLAXIS AGAINST GRAFT VERSUS HOST DISEASE
     Dosage: IV, 6MG/KG/DAY; ORAL, 6 MG/KG/DAY; 30 DAYS, THEN SWITCHED; 3-6 MONTHS
     Route: 042
  2. CYCLOSPORINE [Suspect]
     Indication: PROPHYLAXIS AGAINST GRAFT VERSUS HOST DISEASE
     Dosage: IV, 6MG/KG/DAY; ORAL, 6 MG/KG/DAY; 30 DAYS, THEN SWITCHED; 3-6 MONTHS
     Route: 042
  3. METHOTREXATE SODIUM [Concomitant]
  4. MYCOPHENOLATE MOFETIL [Concomitant]

REACTIONS (1)
  - INFECTION [None]
